FAERS Safety Report 5067664-3 (Version None)
Quarter: 2006Q3

REPORT INFORMATION
  Report Type: 
  Country: None (occurrence: None)
  Receive Date: 20060727
  Receipt Date: 20060714
  Transmission Date: 20061208
  Serious: Yes (Hospitalization)
  Sender: FDA-Public Use
  Company Number: 2006PV017541

PATIENT
  Age: 71 Year
  Sex: Male
  Weight: 117.4816 kg

DRUGS (2)
  1. BYETTA [Suspect]
     Indication: DIABETES MELLITUS NON-INSULIN-DEPENDENT
     Dosage: SEE IMAGE
     Route: 058
     Dates: start: 20060501, end: 20060601
  2. BYETTA [Suspect]
     Indication: DIABETES MELLITUS NON-INSULIN-DEPENDENT
     Dosage: SEE IMAGE
     Route: 058
     Dates: start: 20060601, end: 20060711

REACTIONS (15)
  - ANXIETY [None]
  - APHASIA [None]
  - BLOOD GLUCOSE INCREASED [None]
  - DEHYDRATION [None]
  - DRUG INEFFECTIVE [None]
  - ERYTHEMA [None]
  - FEELING ABNORMAL [None]
  - MALAISE [None]
  - MENTAL DISORDER [None]
  - NAUSEA [None]
  - PHARYNGEAL OEDEMA [None]
  - SWOLLEN TONGUE [None]
  - TREMOR [None]
  - VOMITING [None]
  - WEIGHT DECREASED [None]
